FAERS Safety Report 12355993 (Version 1)
Quarter: 2016Q2

REPORT INFORMATION
  Report Type: Spontaneous
  Country: SE (occurrence: SE)
  Receive Date: 20160511
  Receipt Date: 20160511
  Transmission Date: 20160815
  Serious: No
  Sender: FDA-Public Use
  Company Number: SE-QOL MEDICAL, LLC-1051914

PATIENT
  Age: 14 Year
  Sex: Male

DRUGS (1)
  1. SUCRAID [Suspect]
     Active Substance: SACROSIDASE
     Indication: SUCRASE-ISOMALTASE DEFICIENCY
     Route: 048
     Dates: start: 20150401

REACTIONS (3)
  - Nausea [Unknown]
  - Abdominal pain [Unknown]
  - Diarrhoea [Unknown]

NARRATIVE: CASE EVENT DATE: 20151017
